FAERS Safety Report 9404695 (Version 1)
Quarter: 2013Q3

REPORT INFORMATION
  Report Type: Report from Study
  Country: MX (occurrence: MX)
  Receive Date: 20130717
  Receipt Date: 20130717
  Transmission Date: 20140515
  Serious: Yes (Other)
  Sender: FDA-Public Use
  Company Number: PHHY2013MX074971

PATIENT
  Age: 64 Year
  Sex: Male

DRUGS (5)
  1. RASILEZ [Suspect]
     Indication: HYPERTENSION
     Dosage: 0.5 DF, DAILY (ALIS 150 MG)
     Route: 048
     Dates: start: 20130613
  2. KETOSTERIL (KETOANALOGUES/ESSENTIAL AMINO ACIDS) [Concomitant]
     Dosage: 9 UKN, UNK
     Dates: start: 2010
  3. ZYLOPRIM [Concomitant]
     Dosage: 0.5 UKN, UNK
     Dates: start: 2010
  4. NORVAS [Concomitant]
     Dosage: 0.5 UKN, UNK
     Dates: start: 201305
  5. MIRCERA [Concomitant]
     Dosage: UNK UKN, UNK
     Dates: start: 201306

REACTIONS (2)
  - Renal failure [Unknown]
  - Wrong technique in drug usage process [Not Recovered/Not Resolved]
